FAERS Safety Report 11507358 (Version 1)
Quarter: 2015Q3

REPORT INFORMATION
  Report Type: Spontaneous
  Country: CH (occurrence: CH)
  Receive Date: 20150915
  Receipt Date: 20150915
  Transmission Date: 20151125
  Serious: Yes (Hospitalization, Other)
  Sender: FDA-Public Use
  Company Number: CH-009507513-1509CHE004609

PATIENT
  Age: 46 Year
  Sex: Female

DRUGS (8)
  1. VALTREX [Suspect]
     Active Substance: VALACYCLOVIR HYDROCHLORIDE
     Dosage: 500 MG, BID
     Route: 048
     Dates: start: 20150402, end: 20150628
  2. CARMUSTINE (+) CYTARABINE (+) ETOPOSIDE (+) MELPHALAN [Suspect]
     Active Substance: CARMUSTINE\CYTARABINE\ETOPOSIDE\MELPHALAN
     Indication: HODGKIN^S DISEASE STAGE IV
     Dosage: 1ST CYCLE: 31-MAR-2015, 2ND CYCLE 01-MAY-2015; 3RD CYCLE: 03-JUN-2015
     Route: 042
     Dates: start: 20150331
  3. VALCYTE [Suspect]
     Active Substance: VALGANCICLOVIR HYDROCHLORIDE
     Indication: CYTOMEGALOVIRUS INFECTION
     Dosage: 900 MG, BID
     Route: 048
     Dates: start: 20150718, end: 20150808
  4. ESOMEP [Suspect]
     Active Substance: ESOMEPRAZOLE
     Dosage: 40 MG, QD
     Route: 048
     Dates: start: 20150609, end: 20150825
  5. NOXAFIL [Suspect]
     Active Substance: POSACONAZOLE
     Dosage: 200 MG, TID
     Route: 048
     Dates: start: 20150402, end: 20150629
  6. BACTRIM [Suspect]
     Active Substance: SULFAMETHOXAZOLE\TRIMETHOPRIM
     Dosage: 3 PER WEEK
     Route: 048
     Dates: start: 20150402
  7. VALTREX [Suspect]
     Active Substance: VALACYCLOVIR HYDROCHLORIDE
     Dosage: 500 MG, QD TO TID
     Route: 048
     Dates: start: 20150809
  8. NOXAFIL [Suspect]
     Active Substance: POSACONAZOLE
     Dosage: 100 MG, TID
     Route: 048
     Dates: start: 20150717

REACTIONS (2)
  - Aplasia [None]
  - Pancytopenia [Not Recovered/Not Resolved]

NARRATIVE: CASE EVENT DATE: 20150404
